FAERS Safety Report 10029412 (Version 1)
Quarter: 2014Q1

REPORT INFORMATION
  Report Type: Report from Study
  Country: US (occurrence: US)
  Receive Date: 20140322
  Receipt Date: 20140322
  Transmission Date: 20141002
  Serious: Yes (Life-Threatening)
  Sender: FDA-Public Use
  Company Number: PHEH2014US005510

PATIENT
  Age: 55 Year
  Sex: 0

DRUGS (2)
  1. TEKTURNA [Suspect]
     Dosage: UNK UKN, UNK
  2. TRILEPTAL [Suspect]
     Dosage: 300 MG, QD

REACTIONS (1)
  - Drug dispensing error [Unknown]
